FAERS Safety Report 9300233 (Version 1)
Quarter: 2013Q2

REPORT INFORMATION
  Report Type: Report from Study
  Country: CA (occurrence: CA)
  Receive Date: 20130521
  Receipt Date: 20130521
  Transmission Date: 20140414
  Serious: Yes (Hospitalization)
  Sender: FDA-Public Use
  Company Number: PHHY2013CA030423

PATIENT
  Age: 57 Year
  Sex: Female

DRUGS (2)
  1. EXJADE [Suspect]
     Indication: IRON OVERLOAD
     Dosage: 1500 MG, QD
     Route: 048
     Dates: start: 20130220, end: 20130427
  2. TRANSFUSIONS [Concomitant]

REACTIONS (7)
  - Malaise [Unknown]
  - Osteitis [Unknown]
  - Aphthous stomatitis [Unknown]
  - Asthenopia [Unknown]
  - Fatigue [Unknown]
  - Alopecia [Unknown]
  - Oedema mouth [Unknown]
